FAERS Safety Report 5684387-8 (Version None)
Quarter: 2008Q1

REPORT INFORMATION
  Report Type: 
  Country: None (occurrence: None)
  Receive Date: 20080328
  Receipt Date: 20080319
  Transmission Date: 20080703
  Serious: Yes (Other)
  Sender: FDA-Public Use
  Company Number: CA-JNJFOC-20080104101

PATIENT
  Age: 7 Decade
  Sex: Female
  Weight: 64 kg

DRUGS (18)
  1. REMICADE [Suspect]
     Route: 042
  2. REMICADE [Suspect]
     Route: 042
  3. REMICADE [Suspect]
     Indication: COLITIS ULCERATIVE
     Route: 042
  4. METHOTREXATE [Concomitant]
  5. PANTOPRAZOLE SODIUM [Concomitant]
  6. SALOFALK [Concomitant]
  7. BETAHISTINE [Concomitant]
     Dosage: 16 MG 1/2 TAB THREE TIMES A DAY AS NECESSARY.
  8. FOLIC ACID [Concomitant]
  9. BISOPROLOL FUMARATE [Concomitant]
  10. CALCIUM [Concomitant]
  11. ASACOL [Concomitant]
  12. FOSAMAX [Concomitant]
  13. PREDNISONE TAB [Concomitant]
  14. POTASSIUM CHLORIDE [Concomitant]
  15. VITAMIN B-12 [Concomitant]
  16. BENADRYL [Concomitant]
     Indication: PREMEDICATION
  17. TYLENOL (CAPLET) [Concomitant]
     Indication: PREMEDICATION
  18. SOLU-CORTEF [Concomitant]
     Indication: PREMEDICATION

REACTIONS (2)
  - ABDOMINAL PAIN [None]
  - HAEMATOCHEZIA [None]
